FAERS Safety Report 7504250-7 (Version None)
Quarter: 2011Q2

REPORT INFORMATION
  Report Type: 
  Country: None (occurrence: None)
  Receive Date: 20110525
  Receipt Date: 20110516
  Transmission Date: 20111010
  Serious: Yes (Other)
  Sender: FDA-Public Use
  Company Number: US-BAYER-200935072NA

PATIENT
  Age: 56 Year
  Sex: Female
  Weight: 104 kg

DRUGS (27)
  1. BYETTA [Concomitant]
     Dosage: 5 MG, BID
     Dates: start: 20040101
  2. HYZAAR [Concomitant]
     Dosage: 100/25 MG DAILY
  3. ALBUMIN (HUMAN) [Concomitant]
     Dosage: 250 MG, UNK
     Route: 042
     Dates: start: 20060831
  4. PLAVIX [Concomitant]
  5. HEPARIN [Concomitant]
     Dosage: UNK
     Route: 042
     Dates: start: 20060831
  6. PEPCID [Concomitant]
     Dosage: 20 MG, UNK
     Route: 042
     Dates: start: 20060831
  7. NITROGLYCERIN [Concomitant]
     Dosage: UNK
     Route: 042
     Dates: start: 20060831
  8. PROTAMINE SULFATE [Concomitant]
     Dosage: 250 MG, UNK
     Route: 042
     Dates: start: 20060831
  9. TRASYLOL [Suspect]
     Indication: CORONARY ARTERY BYPASS
     Dosage: 408 ML, UNK
     Route: 042
     Dates: start: 20060831, end: 20060831
  10. COZAAR [Concomitant]
  11. ZOCOR [Concomitant]
     Dosage: 80 MG, HS
  12. VANCOMYCIN [Concomitant]
     Dosage: UNK
     Dates: start: 20060831
  13. NEXIUM [Concomitant]
     Dosage: 40 MG, QD
  14. FUROSEMIDE [Concomitant]
     Dosage: 40 MG, QD
     Dates: start: 20050101
  15. ZETIA [Concomitant]
     Dosage: 10 MG, QD
     Dates: start: 20040101
  16. COREG [Concomitant]
     Dosage: 6.25 MG, BID
  17. CEFUROXIME [Concomitant]
     Dosage: 1.5 G, UNK
     Route: 042
     Dates: start: 20060831
  18. DIPHENHYDRAMINE HCL [Concomitant]
     Dosage: 100 MG, UNK
     Route: 042
     Dates: start: 20060831
  19. MILRINONE [Concomitant]
     Dosage: 5 MG, UNK
     Route: 042
     Dates: start: 20060831
  20. LISINOPRIL [Concomitant]
     Dosage: 40 MG, QD
  21. IMIPRAMINE [Concomitant]
     Dosage: 4 MG, BID
  22. FUROSEMIDE [Concomitant]
     Dosage: 40 MG, UNK
     Route: 042
     Dates: start: 20060831
  23. NOVOLOG [Concomitant]
     Dosage: UNK
     Dates: start: 20000101
  24. METFORMIN HCL [Concomitant]
     Dosage: 1000 MG, BID
  25. GLIMEPIRIDE [Suspect]
  26. LEVOPHED [Concomitant]
     Dosage: 12.38 ML, UNK
     Route: 042
     Dates: start: 20060831
  27. MANNITOL [Concomitant]
     Dosage: 12.5 G, UNK
     Route: 042
     Dates: start: 20060831

REACTIONS (11)
  - STRESS [None]
  - FEAR [None]
  - INJURY [None]
  - RENAL IMPAIRMENT [None]
  - CEREBROVASCULAR ACCIDENT [None]
  - RENAL FAILURE [None]
  - RENAL INJURY [None]
  - EMOTIONAL DISTRESS [None]
  - PAIN [None]
  - ANXIETY [None]
  - UNEVALUABLE EVENT [None]
